FAERS Safety Report 5576401-5 (Version None)
Quarter: 2007Q4

REPORT INFORMATION
  Report Type: 
  Country: None (occurrence: None)
  Receive Date: 20071228
  Receipt Date: 20071213
  Transmission Date: 20080405
  Serious: Yes (Death, Hospitalization)
  Sender: FDA-Public Use
  Company Number: US-ROCHE-532585

PATIENT
  Age: 71 Year
  Sex: Female
  Weight: 74.8 kg

DRUGS (23)
  1. CAPECITABINE [Suspect]
     Route: 048
     Dates: start: 20071029, end: 20071112
  2. BEVACIZUMAB [Suspect]
     Dosage: LAST DOSE PRIOR TO SAE: 29 OCT 2007
     Route: 042
     Dates: start: 20071029, end: 20071129
  3. OXALIPLATIN [Suspect]
     Dosage: LAST DOSE PRIOR TO SAE 29 OCT 2007.
     Route: 042
     Dates: start: 20071029, end: 20071029
  4. BYETTA [Concomitant]
  5. PROCHLORPERAZINE MALEATE [Concomitant]
  6. PHILLIPS' MOM [Concomitant]
  7. PHILLIPS' MOM [Concomitant]
  8. LORTAB [Concomitant]
  9. FISH OIL [Concomitant]
  10. TYLENOL (CAPLET) [Concomitant]
     Dosage: DRUG REPORTED: TYENOL ARTHRITIS PAIN
  11. AVANDIA [Concomitant]
  12. ACIPHEX [Concomitant]
  13. GLYBURIDE [Concomitant]
  14. FUROSEMIDE [Concomitant]
  15. FERROUS SULFATE TAB [Concomitant]
  16. CAPTOPRIL [Concomitant]
  17. LOFIBRA [Concomitant]
  18. XALATAN [Concomitant]
  19. TIMOLOL MALEATE [Concomitant]
  20. BENADRYL [Concomitant]
  21. YUCCA [Concomitant]
  22. GLUCOSAMINE SULFATE/CHONDROITIN [Concomitant]
     Dosage: DRUG REPORTED: GLUCOSAMINE CHONDROITIN
  23. VITAMINS NOS [Concomitant]
     Dosage: DRUG REPORTED: VITAMIN TABLETS

REACTIONS (4)
  - ABDOMINAL PAIN [None]
  - HAEMATEMESIS [None]
  - MUCOSAL INFLAMMATION [None]
  - UPPER GASTROINTESTINAL HAEMORRHAGE [None]
